FAERS Safety Report 19647698 (Version 1)
Quarter: 2021Q3

REPORT INFORMATION
  Report Type: Spontaneous
  Country: CA (occurrence: CA)
  Receive Date: 20210802
  Receipt Date: 20210802
  Transmission Date: 20211014
  Serious: Yes (Other)
  Sender: FDA-Public Use
  Company Number: CA-NALPROPION PHARMACEUTICALS INC.-2021-013676

PATIENT

DRUGS (1)
  1. CONTRAVE [Suspect]
     Active Substance: BUPROPION HYDROCHLORIDE\NALTREXONE HYDROCHLORIDE
     Indication: PRODUCT USED FOR UNKNOWN INDICATION
     Dosage: 90 MILLIGRAM/ 8 MILLIGRAM
     Route: 048

REACTIONS (1)
  - Diverticulitis [Not Recovered/Not Resolved]
